FAERS Safety Report 18619924 (Version 2)
Quarter: 2022Q2

REPORT INFORMATION
  Report Type: Spontaneous
  Country: US (occurrence: US)
  Receive Date: 20201215
  Receipt Date: 20220425
  Transmission Date: 20220721
  Serious: No
  Sender: FDA-Public Use
  Company Number: US-PFIZER INC-2017092483

PATIENT
  Age: 74 Year
  Sex: Female
  Weight: 84 kg

DRUGS (21)
  1. LYRICA [Suspect]
     Active Substance: PREGABALIN
     Indication: Polyneuropathy
     Dosage: 150 MG, DAILY, (1 CAPSULE (50 MG) BY MOUTH IN THE MORNING AND 2 CAPSULE (100 MG) IN THE EVENING
     Route: 048
     Dates: start: 20161230
  2. LYRICA [Suspect]
     Active Substance: PREGABALIN
     Indication: Hereditary motor and sensory neuropathy
     Dosage: 150 MG, DAILY (50 MG CAPSULES 1 CAPSULE IN AM AND 2 CAPSULE IN THE PM BY MOUTH)
     Route: 048
  3. LYRICA [Suspect]
     Active Substance: PREGABALIN
     Indication: Neuralgia
     Dosage: 150 MG, DAILY (TAKE ONE CAPSULE BY MOUTH EVERY MORNING AND 2 CAPSULES IN THE EVENING.)
     Dates: start: 20200609
  4. LYRICA [Suspect]
     Active Substance: PREGABALIN
     Dosage: 2 DF, 2X/DAY
     Route: 048
  5. ALBUTEROL [Concomitant]
     Active Substance: ALBUTEROL
     Dosage: 2.5 MG, AS NEEDED, (TAKE 2.5 MG BY NEBULIZER 1-2 TIMES DALLY AS NEEDED)
     Route: 055
  6. ZYLOPRIM [Concomitant]
     Active Substance: ALLOPURINOL
     Dosage: 100 MG, 1X/DAY
     Route: 048
     Dates: start: 20160721
  7. ELIQUIS [Concomitant]
     Active Substance: APIXABAN
     Dosage: 2.5 MG, 2X/DAY (1 TAB BY MOUTH 2 TIMES DAILY)
     Route: 048
     Dates: start: 20160721
  8. PULMICORT TURBUHALER [Concomitant]
     Active Substance: BUDESONIDE
     Dosage: 0.5 MG, AS NEEDED, (0.5 MG BY NEBULIZER 1-2 TIMES DAILY AS NEEDED)
     Route: 055
  9. FERROUS SULFATE [Concomitant]
     Active Substance: FERROUS SULFATE
     Dosage: 650 MG, 1X/DAY, (650 MG BY MOUTH ONE TIME DALLY AT NOON.)
     Route: 048
  10. NEURONTIN [Concomitant]
     Active Substance: GABAPENTIN
     Dosage: 3000 MG, DAILY, (2 TABS BY MOUTH EVERY MORNING AND 3 TABS BY MOUTH AT BEDTIME DAILY)
     Route: 048
     Dates: start: 20161011
  11. GLUCAGEN [Concomitant]
     Active Substance: GLUCAGON HYDROCHLORIDE
     Indication: Blood glucose decreased
     Dosage: 1 MG, AS NEEDED (1 MG BY INJECTION AS NEEDED)
     Route: 051
     Dates: start: 20150114
  12. DEXTROSE [Concomitant]
     Active Substance: DEXTROSE
     Dosage: UNK UNK, 2X/DAY, (2 TIMES DAILY BEFORE MEALS)
     Dates: start: 20170111
  13. NOVOLOG [Concomitant]
     Active Substance: INSULIN ASPART
     Dosage: UNK (2:50 }150 AC, }200 HS)
     Route: 052
     Dates: start: 20170113
  14. LANTUS SOLOSTAR [Concomitant]
     Active Substance: INSULIN GLARGINE
     Dosage: 12 IU, 1X/DAY (12 UNITS UNDER SKIN ONE TIME DAILY)
     Route: 058
     Dates: start: 20170111
  15. SYNTHROID [Concomitant]
     Active Substance: LEVOTHYROXINE SODIUM
     Dosage: 137 UG, 1X/DAY (TAKE ONE TABLET EVERY DAY)
     Dates: start: 20161205
  16. TOPROL XL [Concomitant]
     Active Substance: METOPROLOL SUCCINATE
     Dosage: 0.5 MG, 1X/DAY (0.5 TABS BY MOUTH ONE TIME DAILY)
     Route: 048
     Dates: start: 20160722
  17. MYFORTIC [Concomitant]
     Active Substance: MYCOPHENOLATE SODIUM
     Dosage: 180 MG, 2X/DAY (1 TAB BY MOUTH 2 TIMES DAILY)
     Route: 048
     Dates: start: 20160513
  18. CRESTOR [Concomitant]
     Active Substance: ROSUVASTATIN CALCIUM
     Dosage: 10 MG, 1X/DAY, (1 TAB BY MOUTH ONE TIME DALLY AT BEDTIME)
     Route: 048
     Dates: start: 20170118
  19. TACROLIMUS [Concomitant]
     Active Substance: TACROLIMUS
     Dosage: 1.5 MG, 2X/DAY (3 CAPS BY MOUTH 2 TIMES DALLY)
     Route: 048
     Dates: start: 20160616
  20. VITAMIN D3 [Concomitant]
     Active Substance: CHOLECALCIFEROL
     Dosage: UNK UNK, 1X/DAY
     Route: 048
  21. AMBIEN [Concomitant]
     Active Substance: ZOLPIDEM TARTRATE
     Indication: Sleep disorder
     Dosage: 10 MG, 1X/DAY (1/2 TO 1 TABLET AT NIGHT )
     Dates: start: 20170108

REACTIONS (3)
  - Pruritus [Unknown]
  - Product prescribing issue [Unknown]
  - Pain [Unknown]
